FAERS Safety Report 6377262-7 (Version None)
Quarter: 2009Q3

REPORT INFORMATION
  Report Type: 
  Country: None (occurrence: None)
  Receive Date: 20090921
  Receipt Date: 20090908
  Transmission Date: 20100115
  Serious: Yes (Hospitalization)
  Sender: FDA-Public Use
  Company Number: 1000008895

PATIENT
  Age: 54 Year
  Sex: Male

DRUGS (6)
  1. ACAMPROSATE (ACAMPROSATE CALCIUM) (333 MILLIGRAM, TABLETS) [Suspect]
     Indication: ALCOHOLISM
     Dosage: (1 DOSAGE FORMS,6 IN 1 D), ORAL
     Route: 048
     Dates: start: 20090825, end: 20090828
  2. SERESTA (10 MILLIGRAM) [Concomitant]
  3. LAROXYL (50 MILLIGRAM, TABLETS) [Concomitant]
  4. IMOVANE (TABLETS) [Concomitant]
  5. AMLOR (5 MILLIGRAM, TABLETS) [Concomitant]
  6. APROVEL (150 MILLIGRAM, TABLETS) [Concomitant]

REACTIONS (1)
  - DYSARTHRIA [None]
